FAERS Safety Report 6245042-9 (Version None)
Quarter: 2009Q2

REPORT INFORMATION
  Report Type: 
  Country: None (occurrence: None)
  Receive Date: 20090619
  Receipt Date: 20090226
  Transmission Date: 20091009
  Serious: No
  Sender: FDA-Public Use
  Company Number: ALL1-2009-00520

PATIENT
  Age: 37 Year
  Sex: Male
  Weight: 108.8 kg

DRUGS (2)
  1. VYVANSE [Suspect]
     Indication: ATTENTION DEFICIT/HYPERACTIVITY DISORDER
     Dosage: 30 MG, 1X/DAY:QD, ORAL; 70 MG, 1X/DAY:QD, ORAL
     Route: 048
  2. PRAVACHOL [Suspect]
     Indication: BLOOD CHOLESTEROL INCREASED
     Dosage: 1X/DAY:QD, ORAL
     Route: 048

REACTIONS (2)
  - NAUSEA [None]
  - PAIN IN EXTREMITY [None]
